FAERS Safety Report 18270395 (Version 1)
Quarter: 2020Q3

REPORT INFORMATION
  Report Type: Spontaneous
  Country: US (occurrence: US)
  Receive Date: 20200916
  Receipt Date: 20200916
  Transmission Date: 20201103
  Serious: No
  Sender: FDA-Public Use
  Company Number: US-AUROBINDO-AUR-APL-2019-056003

PATIENT
  Sex: Female

DRUGS (3)
  1. ZOLOFT [Concomitant]
     Active Substance: SERTRALINE HYDROCHLORIDE
     Indication: DEPRESSION
     Dosage: UNK
     Route: 065
  2. ALPRAZOLAM TABLETS USP 1MG [Suspect]
     Active Substance: ALPRAZOLAM
     Indication: PANIC ATTACK
  3. ALPRAZOLAM TABLETS USP 1MG [Suspect]
     Active Substance: ALPRAZOLAM
     Indication: ANXIETY
     Dosage: 1 MILLIGRAM, FOUR TIMES/DAY
     Route: 048

REACTIONS (4)
  - Product substitution issue [Unknown]
  - Nervousness [Unknown]
  - Feeling jittery [Unknown]
  - Drug ineffective [Unknown]
